FAERS Safety Report 16012295 (Version 2)
Quarter: 2020Q2

REPORT INFORMATION
  Report Type: Spontaneous
  Country: GB (occurrence: GB)
  Receive Date: 20190227
  Receipt Date: 20200401
  Transmission Date: 20200713
  Serious: Yes (Death, Hospitalization, Other)
  Sender: FDA-Public Use
  Company Number: GB-AMGEN-GBRNI2019028278

PATIENT
  Age: 59 Year
  Sex: Female

DRUGS (20)
  1. XGEVA [Suspect]
     Active Substance: DENOSUMAB
     Dosage: 120 MG, Q4WK
     Route: 058
     Dates: start: 20161003
  2. TRASTUZUMAB. [Suspect]
     Active Substance: TRASTUZUMAB
     Dosage: 450 MG, Q3WK
     Route: 042
     Dates: start: 20151022, end: 20160822
  3. PERTUZUMAB. [Suspect]
     Active Substance: PERTUZUMAB
     Dosage: 420 MG, UNK
     Route: 042
     Dates: start: 20160919
  4. PERTUZUMAB. [Suspect]
     Active Substance: PERTUZUMAB
     Dosage: 840 MG, (LOADING DOSE)
     Route: 042
     Dates: start: 20150326
  5. DOCETAXEL. [Suspect]
     Active Substance: DOCETAXEL
     Dosage: 130 MILLIGRAM, Q3WK
     Route: 042
     Dates: start: 20150709, end: 20150820
  6. CYCLOPHOSPHAMIDE. [Suspect]
     Active Substance: CYCLOPHOSPHAMIDE
     Dosage: 900 MG, UNK
     Route: 042
     Dates: start: 20150305, end: 20150305
  7. XGEVA [Suspect]
     Active Substance: DENOSUMAB
     Indication: METASTASES TO BONE
     Dosage: 120 MG, Q4WK
     Route: 058
     Dates: start: 20151031, end: 20160728
  8. PERTUZUMAB. [Suspect]
     Active Substance: PERTUZUMAB
     Dosage: 420 MG, UNK
     Route: 042
     Dates: start: 20150416, end: 20160822
  9. EPIRUBICIN [Suspect]
     Active Substance: EPIRUBICIN
     Dosage: 180 MG, Q3WK
     Route: 042
     Dates: start: 20150305, end: 20150305
  10. PARACETAMOL [Concomitant]
     Active Substance: ACETAMINOPHEN
     Dosage: 1000 MG, (PRIOR TO EACH TRASTUZUMAB CYCLE)
     Route: 048
     Dates: start: 20150326
  11. XGEVA [Suspect]
     Active Substance: DENOSUMAB
     Dosage: 120 MG, Q4WK
     Route: 058
     Dates: start: 20150326
  12. TRASTUZUMAB. [Suspect]
     Active Substance: TRASTUZUMAB
     Dosage: 470 MG, Q3WK (MAINTAINANCE DOSE)
     Route: 042
     Dates: start: 20150416, end: 20150719
  13. DOCETAXEL. [Suspect]
     Active Substance: DOCETAXEL
     Dosage: UNK
     Route: 042
  14. TRASTUZUMAB. [Suspect]
     Active Substance: TRASTUZUMAB
     Indication: PRODUCT USED FOR UNKNOWN INDICATION
     Dosage: 464 MG, Q4WK
     Route: 042
     Dates: start: 20150709, end: 20151022
  15. DOCETAXEL. [Suspect]
     Active Substance: DOCETAXEL
     Dosage: 140 MG, Q3WK
     Route: 042
     Dates: start: 20150326, end: 20150709
  16. ANASTROZOLE. [Suspect]
     Active Substance: ANASTROZOLE
     Dosage: 1 MG, QD
     Route: 048
     Dates: start: 201510
  17. TRASTUZUMAB. [Suspect]
     Active Substance: TRASTUZUMAB
     Dosage: 600 MG, (LOADING DOSE)
     Route: 042
  18. 5-FLUOROURACIL [Suspect]
     Active Substance: FLUOROURACIL
     Dosage: 900 MG, Q3WK
     Route: 042
     Dates: start: 20150305, end: 20150305
  19. CHLORPHENAMINE [Concomitant]
     Active Substance: CHLORPHENIRAMINE MALEATE
     Dosage: 10 MG, (PRIOR TO EACH TRASTUZUMAB CYCLE)
     Route: 042
     Dates: start: 20150326
  20. TRASTUZUMAB. [Suspect]
     Active Substance: TRASTUZUMAB
     Dosage: 450 MG, Q3WK
     Route: 042
     Dates: start: 20160912

REACTIONS (19)
  - Off label use [Unknown]
  - Decreased appetite [Recovered/Resolved]
  - Nasopharyngitis [Recovered/Resolved]
  - Arthralgia [Recovered/Resolved]
  - Diarrhoea [Recovered/Resolved]
  - Mucosal inflammation [Recovered/Resolved]
  - Fatigue [Recovered/Resolved]
  - Fatigue [Recovered/Resolved]
  - Vomiting [Recovered/Resolved]
  - Headache [Recovered/Resolved]
  - Neuropathy peripheral [Recovered/Resolved]
  - Catheter site bruise [Recovered/Resolved]
  - Gastroenteritis viral [Recovered/Resolved]
  - Oropharyngeal pain [Recovered/Resolved]
  - Myalgia [Recovered/Resolved]
  - Cough [Recovered/Resolved]
  - Diarrhoea [Not Recovered/Not Resolved]
  - Neuropathy peripheral [Recovered/Resolved]
  - Pyrexia [Recovered/Resolved]

NARRATIVE: CASE EVENT DATE: 20150709
